FAERS Safety Report 16395333 (Version 1)
Quarter: 2019Q2

REPORT INFORMATION
  Report Type: Spontaneous
  Country: ZA (occurrence: ZA)
  Receive Date: 20190605
  Receipt Date: 20190605
  Transmission Date: 20190711
  Serious: Yes (Other)
  Sender: FDA-Public Use
  Company Number: ZA-ASTRAZENECA-2019SE77429

PATIENT
  Age: 22162 Day
  Sex: Female
  Weight: 68 kg

DRUGS (5)
  1. ESTRADOT [Concomitant]
     Active Substance: ESTRADIOL
     Indication: HYPERTENSION
     Route: 062
     Dates: start: 2010
  2. LANTUS [Concomitant]
     Active Substance: INSULIN GLARGINE
     Indication: DIABETES MELLITUS
     Dosage: 164
     Route: 058
     Dates: start: 2017
  3. FORXIGA [Suspect]
     Active Substance: DAPAGLIFLOZIN
     Indication: DIABETES MELLITUS
     Route: 048
     Dates: start: 20190513, end: 20190516
  4. INSULIN [Concomitant]
     Active Substance: INSULIN NOS
  5. DORMONOCT [Concomitant]
     Active Substance: LOPRAZOLAM
     Indication: INSOMNIA
     Dosage: 44 AS REQUIRED
     Route: 048
     Dates: start: 2010

REACTIONS (4)
  - Urinary tract infection [Recovered/Resolved]
  - Candida infection [Unknown]
  - Back pain [Unknown]
  - Hypotension [Unknown]

NARRATIVE: CASE EVENT DATE: 20190513
